FAERS Safety Report 9088615 (Version 1)
Quarter: 2013Q1

REPORT INFORMATION
  Report Type: Report from Study
  Country: US (occurrence: US)
  Receive Date: 20130201
  Receipt Date: 20130201
  Transmission Date: 20140127
  Serious: No
  Sender: FDA-Public Use
  Company Number: US-ABBOTT-12P-163-1018651-00

PATIENT
  Age: 68 Year
  Sex: Female

DRUGS (9)
  1. HUMIRA [Suspect]
     Indication: RHEUMATOID ARTHRITIS
  2. METHOTREXATE [Concomitant]
     Indication: RHEUMATOID ARTHRITIS
     Dosage: 5 MG DAILY
     Route: 048
  3. FOLIC ACID [Concomitant]
     Indication: RHEUMATOID ARTHRITIS
     Dosage: 1 MG DAILY
     Route: 048
  4. EVOXAC [Concomitant]
     Indication: SJOGREN^S SYNDROME
  5. CALCIUM [Concomitant]
     Indication: SUPPLEMENTATION THERAPY
     Dosage: DAILY
     Route: 048
  6. VITAMINS [Concomitant]
     Indication: SUPPLEMENTATION THERAPY
     Dosage: DAILY
     Route: 048
  7. VIVELLE PATCH [Concomitant]
     Indication: HORMONE REPLACEMENT THERAPY
  8. LUMIGAN [Concomitant]
     Indication: GLAUCOMA
     Dosage: 0.01% DROP IN EACH EYE DAILY
     Route: 047
  9. RESTASIS [Concomitant]
     Indication: DRY EYE
     Dosage: IN EACH EYE
     Route: 047

REACTIONS (3)
  - Device malfunction [Not Recovered/Not Resolved]
  - Incorrect dose administered [Not Recovered/Not Resolved]
  - Arthralgia [Not Recovered/Not Resolved]
